FAERS Safety Report 14391522 (Version 1)
Quarter: 2018Q1

REPORT INFORMATION
  Report Type: Spontaneous
  Country: US (occurrence: US)
  Receive Date: 20180111
  Receipt Date: 20180111
  Transmission Date: 20180509
  Serious: Yes (Disabling)
  Sender: FDA-Public Use
  Company Number: None

PATIENT
  Age: 35 Year
  Sex: Male
  Weight: 126 kg

DRUGS (1)
  1. HYDROCODONE/ACETAMINOPHEN 10/325 [Suspect]
     Active Substance: ACETAMINOPHEN\HYDROCODONE
     Indication: BACK PAIN
     Dosage: ?          QUANTITY:1 TABLET(S);?
     Route: 048
     Dates: start: 20171224, end: 20180107

REACTIONS (4)
  - Somnolence [None]
  - Drug ineffective [None]
  - Product quality issue [None]
  - Nausea [None]

NARRATIVE: CASE EVENT DATE: 20180107
